FAERS Safety Report 19717734 (Version 1)
Quarter: 2021Q3

REPORT INFORMATION
  Report Type: Spontaneous
  Country: IT (occurrence: IT)
  Receive Date: 20210819
  Receipt Date: 20210819
  Transmission Date: 20211014
  Serious: Yes (Hospitalization)
  Sender: FDA-Public Use
  Company Number: IT-HRARD-2021000890

PATIENT
  Age: 39 Year
  Sex: Male

DRUGS (1)
  1. LYSODREN [Suspect]
     Active Substance: MITOTANE
     Dosage: NO FREQUENCY PROIVDED
     Route: 048
     Dates: start: 20200915, end: 20201007

REACTIONS (1)
  - Pleural effusion [Recovering/Resolving]

NARRATIVE: CASE EVENT DATE: 20201018
